FAERS Safety Report 8433346-0 (Version None)
Quarter: 2012Q2

REPORT INFORMATION
  Report Type: 
  Country: None (occurrence: None)
  Receive Date: 20120323
  Receipt Date: 20111123
  Transmission Date: 20120825
  Serious: Yes (Other)
  Sender: FDA-Public Use
  Company Number: 163-21880-11083233

PATIENT
  Age: 57 Year
  Sex: Male
  Weight: 89.5 kg

DRUGS (3)
  1. REVLIMID [Suspect]
     Indication: LYMPHOMA
     Dosage: 10 MG, DAILY FOR 21 DAYS, PO 10 MG, QOD, PO
     Route: 048
     Dates: start: 20110301
  2. REVLIMID [Suspect]
  3. LEUKINE [Concomitant]

REACTIONS (3)
  - NEUTROPENIA [None]
  - LEUKOPENIA [None]
  - HYPOAESTHESIA [None]
